FAERS Safety Report 6743506-2 (Version None)
Quarter: 2010Q2

REPORT INFORMATION
  Report Type: 
  Country: None (occurrence: None)
  Receive Date: 20100526
  Receipt Date: 20100526
  Transmission Date: 20101027
  Serious: Yes (Other)
  Sender: FDA-Public Use
  Company Number: None

PATIENT
  Sex: Female
  Weight: 56 kg

DRUGS (1)
  1. GAMMAGARD LIQUID [Suspect]
     Indication: POLYNEUROPATHY
     Dosage: 55GM QD IV
     Route: 042
     Dates: start: 20100523

REACTIONS (2)
  - PRURITUS [None]
  - URTICARIA [None]
